FAERS Safety Report 6881780-2 (Version None)
Quarter: 2010Q3

REPORT INFORMATION
  Report Type: 
  Country: None (occurrence: None)
  Receive Date: 20100729
  Receipt Date: 20100719
  Transmission Date: 20110219
  Serious: Yes (Other)
  Sender: FDA-Public Use
  Company Number: US-PFIZER INC-2010090523

PATIENT
  Sex: Female

DRUGS (1)
  1. LIPITOR [Suspect]
     Dosage: UNK

REACTIONS (6)
  - DRUG DOSE OMISSION [None]
  - FATIGUE [None]
  - FIBROMYALGIA [None]
  - MYALGIA [None]
  - MYOCARDIAL INFARCTION [None]
  - SCOLIOSIS [None]
